FAERS Safety Report 7996334-4 (Version None)
Quarter: 2011Q4

REPORT INFORMATION
  Report Type: 
  Country: None (occurrence: None)
  Receive Date: 20111220
  Receipt Date: 20111207
  Transmission Date: 20120403
  Serious: Yes (Other)
  Sender: FDA-Public Use
  Company Number: US-ELI_LILLY_AND_COMPANY-US201106001048

PATIENT
  Sex: Female

DRUGS (7)
  1. METHADONE HCL [Concomitant]
  2. MULTI-VITAMIN [Concomitant]
  3. VENTOLIN                                /SCH/ [Concomitant]
  4. FORTEO [Suspect]
     Dosage: 20 UG, QD
  5. SYMBICORT [Concomitant]
  6. FORTEO [Suspect]
     Indication: OSTEOPOROSIS
     Dosage: 20 UG, QD
  7. ENALAPRIL [Concomitant]

REACTIONS (3)
  - THROMBOSIS [None]
  - INJECTION SITE HAEMATOMA [None]
  - OEDEMA PERIPHERAL [None]
